FAERS Safety Report 9413226 (Version 1)
Quarter: 2013Q3

REPORT INFORMATION
  Report Type: Spontaneous
  Country: US (occurrence: None)
  Receive Date: 20130717
  Receipt Date: 20130717
  Transmission Date: 20140515
  Serious: Yes (Hospitalization)
  Sender: FDA-Public Use
  Company Number: UTC-035147

PATIENT
  Age: 60 Year
  Sex: Male

DRUGS (1)
  1. TYVASO [Suspect]
     Indication: PRODUCT USED FOR UNKNOWN INDICATION
     Dosage: 48 MCG (12 MCG,4 IN 1 D),INHALATION
     Route: 055
     Dates: start: 20130612, end: 2013

REACTIONS (4)
  - Cardio-respiratory arrest [None]
  - Oxygen saturation abnormal [None]
  - Asthenia [None]
  - Dyspnoea [None]
